FAERS Safety Report 12510176 (Version 1)
Quarter: 2016Q2

REPORT INFORMATION
  Report Type: Report from Study
  Country: KR (occurrence: KR)
  Receive Date: 20160629
  Receipt Date: 20160629
  Transmission Date: 20160815
  Serious: Yes (Hospitalization)
  Sender: FDA-Public Use
  Company Number: KR-JNJFOC-20160502718

PATIENT
  Sex: Female
  Weight: 58 kg

DRUGS (84)
  1. ACETAMINOPHEN. [Concomitant]
     Active Substance: ACETAMINOPHEN
     Indication: PROPHYLAXIS
     Route: 065
     Dates: start: 20150718, end: 20150722
  2. FENTANYL CITRATE. [Concomitant]
     Active Substance: FENTANYL CITRATE
     Route: 065
     Dates: start: 20150505, end: 20150505
  3. LEVOFLOXACIN. [Concomitant]
     Active Substance: LEVOFLOXACIN
     Indication: PROPHYLAXIS
     Dosage: TOTAL DAILY DOSE 750 MG
     Route: 065
     Dates: start: 20150611, end: 20150927
  4. METFORMIN HYDROCHLORIDE. [Concomitant]
     Active Substance: METFORMIN HYDROCHLORIDE
     Indication: PROPHYLAXIS
     Dosage: TOTAL DAILY DOSE 2 TAB
     Route: 065
     Dates: start: 20150521, end: 20150903
  5. EPERISONE HYDROCHLORIDE [Concomitant]
     Active Substance: EPERISONE HYDROCHLORIDE
     Indication: PROPHYLAXIS
     Dosage: TOTAL DAILY DOSE 1 TAB
     Route: 065
     Dates: start: 20150525, end: 20150525
  6. ACYCLOVIR. [Concomitant]
     Active Substance: ACYCLOVIR
     Indication: PROPHYLAXIS
     Dosage: TOTAL DAILY DOSE 1.12 VIAL
     Route: 065
     Dates: start: 20150713, end: 20150713
  7. PALONOSETRON HYDROCHLORIDE. [Concomitant]
     Active Substance: PALONOSETRON HYDROCHLORIDE
     Indication: PROPHYLAXIS
     Dosage: TOTAL DAILY DOSE 1 VIAL
     Route: 065
     Dates: start: 20160501, end: 20160502
  8. PETHIDINE HYDROCHLORIDE [Concomitant]
     Active Substance: MEPERIDINE HYDROCHLORIDE
     Route: 065
     Dates: start: 20150502, end: 20150512
  9. VANCOMYCIN HYDROCHLORIDE. [Concomitant]
     Active Substance: VANCOMYCIN HYDROCHLORIDE
     Indication: PROPHYLAXIS
     Dosage: TOTAL DAILY DOSE 2 VIAL
     Route: 065
     Dates: start: 20150428, end: 20150428
  10. VANCOMYCIN HYDROCHLORIDE. [Concomitant]
     Active Substance: VANCOMYCIN HYDROCHLORIDE
     Indication: PROPHYLAXIS
     Dosage: TOTAL DAILY DOSE 3 VIAL
     Route: 065
     Dates: start: 20150429, end: 20150429
  11. SITAGLIPTIN PHOSPHATE [Concomitant]
     Active Substance: SITAGLIPTIN PHOSPHATE
     Indication: PROPHYLAXIS
     Dosage: TOTAL DAILY DOSE 0.5 TAB
     Route: 065
     Dates: start: 20150520, end: 20150520
  12. FAMCICLOVIR. [Concomitant]
     Active Substance: FAMCICLOVIR
     Indication: PROPHYLAXIS
     Dosage: TOTAL DAILY DOSE 1 TAB
     Route: 065
     Dates: start: 20150705, end: 20150706
  13. PROGLUMETACIN MALEATE [Concomitant]
     Active Substance: PROGLUMETACIN MALEATE
     Indication: PROPHYLAXIS
     Dosage: TOTAL 3 CAP
     Route: 065
     Dates: start: 20150501, end: 20150506
  14. XARELTO [Suspect]
     Active Substance: RIVAROXABAN
     Indication: EMBOLISM VENOUS
     Route: 048
     Dates: start: 20150529, end: 20150703
  15. XARELTO [Suspect]
     Active Substance: RIVAROXABAN
     Indication: ANTICOAGULANT THERAPY
     Route: 048
     Dates: start: 20150425, end: 20150427
  16. FENTANYL CITRATE. [Concomitant]
     Active Substance: FENTANYL CITRATE
     Route: 065
     Dates: start: 20150515, end: 20150515
  17. TRAMADOL HYDROCHLORIDE. [Concomitant]
     Active Substance: TRAMADOL HYDROCHLORIDE
     Indication: PROPHYLAXIS
     Route: 065
     Dates: start: 20150415, end: 20150415
  18. SODIUM ALGINATE [Concomitant]
     Active Substance: SODIUM ALGINATE
     Indication: PROPHYLAXIS
     Dosage: TOTAL DAILY DOSE 3 PACK
     Route: 065
     Dates: start: 20150408, end: 20150424
  19. EPERISONE HYDROCHLORIDE [Concomitant]
     Active Substance: EPERISONE HYDROCHLORIDE
     Indication: PROPHYLAXIS
     Dosage: TOTAL DAILY DOSE 1 TAB
     Route: 065
     Dates: start: 20150525, end: 20150525
  20. ACYCLOVIR. [Concomitant]
     Active Substance: ACYCLOVIR
     Indication: PROPHYLAXIS
     Dosage: TOTAL DAILY DOSE 3.36 VIAL
     Route: 065
     Dates: start: 20150707, end: 20150712
  21. VANCOMYCIN HYDROCHLORIDE. [Concomitant]
     Active Substance: VANCOMYCIN HYDROCHLORIDE
     Indication: PROPHYLAXIS
     Dosage: TOTAL DAILY DOSE 2 VIAL
     Route: 065
     Dates: start: 20150430, end: 20150610
  22. GLIMEPIRIDE. [Concomitant]
     Active Substance: GLIMEPIRIDE
     Indication: PROPHYLAXIS
     Dosage: TOTAL DAILY DOSE 2 TAB
     Route: 065
     Dates: start: 20150703, end: 20150903
  23. HEPARIN [Concomitant]
     Active Substance: HEPARIN SODIUM
     Route: 065
     Dates: start: 20150428, end: 20150428
  24. PROGLUMETACIN MALEATE [Concomitant]
     Active Substance: PROGLUMETACIN MALEATE
     Indication: PROPHYLAXIS
     Dosage: 3 CAP
     Route: 065
     Dates: start: 20150425, end: 20150428
  25. PROGLUMETACIN MALEATE [Concomitant]
     Active Substance: PROGLUMETACIN MALEATE
     Indication: PROPHYLAXIS
     Dosage: 2 CAP
     Route: 065
     Dates: start: 20150430, end: 20150430
  26. XARELTO [Suspect]
     Active Substance: RIVAROXABAN
     Indication: EMBOLISM VENOUS
     Route: 048
     Dates: start: 20150425, end: 20150427
  27. XARELTO [Suspect]
     Active Substance: RIVAROXABAN
     Indication: EMBOLISM VENOUS
     Route: 048
     Dates: start: 20150423, end: 20150424
  28. XARELTO [Suspect]
     Active Substance: RIVAROXABAN
     Indication: ANTICOAGULANT THERAPY
     Route: 048
     Dates: start: 20150417, end: 20150422
  29. XARELTO [Suspect]
     Active Substance: RIVAROXABAN
     Indication: ANTICOAGULANT THERAPY
     Route: 048
     Dates: start: 20150515, end: 20150528
  30. TRAMADOL HYDROCHLORIDE. [Concomitant]
     Active Substance: TRAMADOL HYDROCHLORIDE
     Indication: PROPHYLAXIS
     Route: 065
     Dates: start: 20150416, end: 20150416
  31. ACYCLOVIR. [Concomitant]
     Active Substance: ACYCLOVIR
     Indication: PROPHYLAXIS
     Dosage: TOTAL DAILY DOSE 1.12 VIAL
     Route: 065
     Dates: start: 20150706, end: 20150706
  32. PALONOSETRON HYDROCHLORIDE. [Concomitant]
     Active Substance: PALONOSETRON HYDROCHLORIDE
     Indication: PROPHYLAXIS
     Dosage: TOTAL DAILY DOSE 1 VIAL
     Route: 065
     Dates: start: 20150429, end: 20150429
  33. PROPACETAMOL HYDROCHLORIDE [Concomitant]
     Active Substance: PROPACETAMOL HYDROCHLORIDE
     Indication: PROPHYLAXIS
     Dosage: TOTAL DAILY DOSE 1 VIAL
     Route: 065
     Dates: start: 20150427, end: 20150428
  34. VANCOMYCIN HYDROCHLORIDE. [Concomitant]
     Active Substance: VANCOMYCIN HYDROCHLORIDE
     Indication: PROPHYLAXIS
     Dosage: TOTAL DAILY DOSE 1 VIAL
     Route: 065
     Dates: start: 20150427, end: 20150427
  35. HEPARIN [Concomitant]
     Active Substance: HEPARIN SODIUM
     Route: 065
     Dates: start: 20150709, end: 20150709
  36. HEPARIN [Concomitant]
     Active Substance: HEPARIN SODIUM
     Route: 065
     Dates: start: 20150704, end: 20150705
  37. ACETYLCYSTEIN [Concomitant]
     Active Substance: ACETYLCYSTEINE
     Indication: PROPHYLAXIS
     Dosage: TOTAL DAILY DOSE 1 AMP
     Route: 065
     Dates: start: 20150429, end: 20150429
  38. FENTANYL CITRATE. [Concomitant]
     Active Substance: FENTANYL CITRATE
     Route: 065
     Dates: start: 20150430, end: 20150430
  39. CALCIUM POLYSTYRENE SULFONATE [Concomitant]
     Active Substance: CALCIUM POLYSTYRENE SULFONATE
     Indication: PROPHYLAXIS
     Dosage: TOTAL DAILY DOSE 4 PACK
     Route: 065
     Dates: start: 20150427, end: 20150427
  40. PREGABALIN. [Concomitant]
     Active Substance: PREGABALIN
     Indication: PROPHYLAXIS
     Dosage: TOTAL DAILY DOSE 2 CAP
     Route: 065
     Dates: start: 20150706, end: 20150706
  41. TAMSULOSIN HYDROCHLORIDE. [Concomitant]
     Active Substance: TAMSULOSIN HYDROCHLORIDE
     Indication: PROPHYLAXIS
     Dosage: TOTAL DAILY DOSE 1 TAB
     Route: 065
     Dates: start: 20150501, end: 20150507
  42. CLINDAMYCIN HYDROCHLORIDE. [Concomitant]
     Active Substance: CLINDAMYCIN HYDROCHLORIDE
     Indication: PROPHYLAXIS
     Dosage: TOTAL DAILY DOSE 6 CAP
     Route: 065
     Dates: start: 20150707, end: 20150930
  43. PROGLUMETACIN MALEATE [Concomitant]
     Active Substance: PROGLUMETACIN MALEATE
     Indication: PROPHYLAXIS
     Dosage: 2 CAP
     Route: 065
     Dates: start: 20150424, end: 20150424
  44. CELECOXIB. [Concomitant]
     Active Substance: CELECOXIB
     Indication: PROPHYLAXIS
     Dosage: TOTAL DAILY DOSE 1 CAP
     Route: 065
     Dates: start: 20151005, end: 20151005
  45. XARELTO [Suspect]
     Active Substance: RIVAROXABAN
     Indication: ANTICOAGULANT THERAPY
     Route: 048
     Dates: start: 20150423, end: 20150424
  46. XARELTO [Suspect]
     Active Substance: RIVAROXABAN
     Indication: ANTICOAGULANT THERAPY
     Route: 048
     Dates: start: 20150514, end: 20150514
  47. TRAMADOL HYDROCHLORIDE. [Concomitant]
     Active Substance: TRAMADOL HYDROCHLORIDE
     Indication: PROPHYLAXIS
     Route: 065
     Dates: start: 20150416, end: 20150416
  48. PIPRINHYDRINATE [Concomitant]
     Indication: PROPHYLAXIS
     Route: 065
     Dates: start: 20150705, end: 20150705
  49. SITAGLIPTIN PHOSPHATE [Concomitant]
     Active Substance: SITAGLIPTIN PHOSPHATE
     Indication: PROPHYLAXIS
     Dosage: TOTAL DAILY DOSE 1 TAB
     Route: 065
     Dates: start: 20150521, end: 20150521
  50. GLIMEPIRIDE. [Concomitant]
     Active Substance: GLIMEPIRIDE
     Indication: PROPHYLAXIS
     Dosage: TOTAL DAILY DOSE 1 TAB
     Route: 065
     Dates: start: 20150430, end: 20150430
  51. GLIMEPIRIDE. [Concomitant]
     Active Substance: GLIMEPIRIDE
     Indication: PROPHYLAXIS
     Dosage: TOTAL DAILY DOSE 2 TAB
     Route: 065
     Dates: start: 20150501, end: 20150501
  52. CELECOXIB. [Concomitant]
     Active Substance: CELECOXIB
     Indication: PROPHYLAXIS
     Dosage: TOTAL 2 CAP
     Route: 065
     Dates: start: 20150411, end: 20150422
  53. CELECOXIB. [Concomitant]
     Active Substance: CELECOXIB
     Indication: PROPHYLAXIS
     Dosage: TOTAL DAILY DOSE 1 CAP
     Route: 065
     Dates: start: 20150424, end: 20150424
  54. CELECOXIB. [Concomitant]
     Active Substance: CELECOXIB
     Indication: PROPHYLAXIS
     Dosage: TOTAL DAILY DOSE 3 CAP
     Route: 065
     Dates: start: 20150423, end: 20150423
  55. XARELTO [Suspect]
     Active Substance: RIVAROXABAN
     Indication: EMBOLISM VENOUS
     Route: 048
     Dates: start: 20150428, end: 20150428
  56. XARELTO [Suspect]
     Active Substance: RIVAROXABAN
     Indication: EMBOLISM VENOUS
     Route: 048
     Dates: start: 20150514, end: 20150514
  57. XARELTO [Suspect]
     Active Substance: RIVAROXABAN
     Indication: ANTICOAGULANT THERAPY
     Route: 048
     Dates: start: 20150428, end: 20150428
  58. EPERISONE HYDROCHLORIDE [Concomitant]
     Active Substance: EPERISONE HYDROCHLORIDE
     Indication: PROPHYLAXIS
     Dosage: TOTAL DAILY DOSE 3 TAB
     Route: 065
     Dates: start: 20150409, end: 20150524
  59. TACOPEN [Concomitant]
     Indication: PROPHYLAXIS
     Route: 065
     Dates: start: 20150412, end: 20150428
  60. CARNITINE HYDROCHLORIDE W/CYANOCOBA/08463401/ [Concomitant]
     Indication: PROPHYLAXIS
     Route: 065
     Dates: start: 20150506, end: 20150711
  61. PALONOSETRON HYDROCHLORIDE. [Concomitant]
     Active Substance: PALONOSETRON HYDROCHLORIDE
     Indication: PROPHYLAXIS
     Dosage: TOTAL DAILY DOSE 1 VIAL
     Route: 065
     Dates: start: 20160501, end: 20160502
  62. CEFTRIAXONE SODIUM. [Concomitant]
     Active Substance: CEFTRIAXONE SODIUM
     Indication: PROPHYLAXIS
     Dosage: TOTAL DAILY DOSE 1 VIAL
     Route: 065
     Dates: start: 20150427, end: 20150429
  63. XARELTO [Suspect]
     Active Substance: RIVAROXABAN
     Indication: ANTICOAGULANT THERAPY
     Route: 048
     Dates: start: 20150529, end: 20150703
  64. METFORMIN HYDROCHLORIDE. [Concomitant]
     Active Substance: METFORMIN HYDROCHLORIDE
     Indication: PROPHYLAXIS
     Dosage: TOTAL DAILY DOSE 1 TAB
     Route: 065
     Dates: start: 20150520, end: 20150520
  65. CALCIUM POLYSTYRENE SULFONATE [Concomitant]
     Active Substance: CALCIUM POLYSTYRENE SULFONATE
     Indication: PROPHYLAXIS
     Dosage: TOTAL DAILY DOSE 2 PACK
     Route: 065
     Dates: start: 20150428, end: 20150428
  66. EPERISONE HYDROCHLORIDE [Concomitant]
     Active Substance: EPERISONE HYDROCHLORIDE
     Indication: PROPHYLAXIS
     Dosage: TOTAL DAILY DOSE 3 TAB
     Route: 065
     Dates: start: 20150409, end: 20150524
  67. RIFAMPICIN [Concomitant]
     Active Substance: RIFAMPIN
     Indication: PROPHYLAXIS
     Route: 065
     Dates: start: 20150611, end: 20150927
  68. PETHIDINE HYDROCHLORIDE [Concomitant]
     Active Substance: MEPERIDINE HYDROCHLORIDE
     Route: 065
     Dates: start: 20150526, end: 20150526
  69. KETOROLAC TROMETHAMINE. [Concomitant]
     Active Substance: KETOROLAC TROMETHAMINE
     Indication: PROPHYLAXIS
     Route: 065
     Dates: start: 20150430, end: 20150430
  70. CLINDAMYCIN HYDROCHLORIDE. [Concomitant]
     Active Substance: CLINDAMYCIN HYDROCHLORIDE
     Indication: PROPHYLAXIS
     Dosage: TOTAL DAILY DOSE 4 CAP
     Route: 065
     Dates: start: 20150706, end: 20150706
  71. GLIMEPIRIDE. [Concomitant]
     Active Substance: GLIMEPIRIDE
     Indication: PROPHYLAXIS
     Dosage: TOTAL DAILY DOSE 1 TAB
     Route: 065
     Dates: start: 20150428, end: 20150428
  72. XARELTO [Suspect]
     Active Substance: RIVAROXABAN
     Indication: EMBOLISM VENOUS
     Route: 048
     Dates: start: 20150515, end: 20150528
  73. XARELTO [Suspect]
     Active Substance: RIVAROXABAN
     Indication: EMBOLISM VENOUS
     Route: 048
     Dates: start: 20150417, end: 20150422
  74. TRAMADOL HYDROCHLORIDE. [Concomitant]
     Active Substance: TRAMADOL HYDROCHLORIDE
     Indication: PROPHYLAXIS
     Route: 065
     Dates: start: 20150415, end: 20150415
  75. SODIUM ALGINATE [Concomitant]
     Active Substance: SODIUM ALGINATE
     Indication: PROPHYLAXIS
     Dosage: TOTAL DAILY DOSE 1 PACK
     Route: 065
     Dates: start: 20150425, end: 20150425
  76. PALONOSETRON HYDROCHLORIDE. [Concomitant]
     Active Substance: PALONOSETRON HYDROCHLORIDE
     Indication: PROPHYLAXIS
     Dosage: TOTAL DAILY DOSE 1 VIAL
     Route: 065
     Dates: start: 20150429, end: 20150429
  77. INSULIN HUMAN [Concomitant]
     Active Substance: INSULIN HUMAN
     Indication: PROPHYLAXIS
     Dosage: TOTAL DAILY DOSE 0.05 VIAL
     Route: 065
     Dates: start: 20150406, end: 20150425
  78. INSULIN HUMAN [Concomitant]
     Active Substance: INSULIN HUMAN
     Indication: PROPHYLAXIS
     Dosage: TOTAL DAILY DOSE 0.05 VIAL
     Route: 065
     Dates: start: 20150429, end: 20150515
  79. POTASSIUM CHLORIDE. [Concomitant]
     Active Substance: POTASSIUM CHLORIDE
     Route: 065
     Dates: start: 20150429, end: 20150429
  80. PETHIDINE HYDROCHLORIDE [Concomitant]
     Active Substance: MEPERIDINE HYDROCHLORIDE
     Route: 065
     Dates: start: 20150429, end: 20150429
  81. CLINDAMYCIN HYDROCHLORIDE. [Concomitant]
     Active Substance: CLINDAMYCIN HYDROCHLORIDE
     Indication: PROPHYLAXIS
     Dosage: TOTAL DAILY DOSE 6 CAP
     Route: 065
     Dates: start: 20150703, end: 20150705
  82. GLIMEPIRIDE. [Concomitant]
     Active Substance: GLIMEPIRIDE
     Indication: PROPHYLAXIS
     Dosage: TOTAL DAILY DOSE 3 TAB
     Route: 065
     Dates: start: 20150502, end: 20150702
  83. HEPARIN [Concomitant]
     Active Substance: HEPARIN SODIUM
     Route: 065
     Dates: start: 20150706, end: 20150708
  84. HEPARIN [Concomitant]
     Active Substance: HEPARIN SODIUM
     Route: 065
     Dates: start: 20150513, end: 20150513

REACTIONS (3)
  - Arthritis bacterial [Recovered/Resolved]
  - Pulmonary embolism [Recovering/Resolving]
  - Pulmonary embolism [Recovering/Resolving]

NARRATIVE: CASE EVENT DATE: 20150427
